FAERS Safety Report 21229920 (Version 13)
Quarter: 2022Q4

REPORT INFORMATION
  Report Type: Report from Study
  Country: JP (occurrence: JP)
  Receive Date: 20220818
  Receipt Date: 20221018
  Transmission Date: 20230113
  Serious: Yes (Death, Life-Threatening, Hospitalization, Other)
  Sender: FDA-Public Use
  Company Number: JP-BRISTOL-MYERS SQUIBB COMPANY-2022-086051

PATIENT
  Age: 77 Year
  Sex: Male
  Weight: 70 kg

DRUGS (41)
  1. DEXAMETHASONE [Suspect]
     Active Substance: DEXAMETHASONE
     Indication: Plasma cell myeloma
     Route: 048
     Dates: start: 20190809, end: 20220725
  2. LENALIDOMIDE [Suspect]
     Active Substance: LENALIDOMIDE
     Indication: Plasma cell myeloma
     Route: 048
     Dates: start: 20190813, end: 20220724
  3. BORTEZOMIB [Suspect]
     Active Substance: BORTEZOMIB
     Indication: Plasma cell myeloma
     Dosage: ONCE DAILY CYCLE 1-8: DAY 1, 4, 8, 11
     Route: 058
     Dates: start: 20190813, end: 20220117
  4. METHYLCOBALAMIN [Concomitant]
     Active Substance: METHYLCOBALAMIN
     Indication: Peripheral sensory neuropathy
     Dosage: 1 IN 0.33 D
     Route: 048
     Dates: start: 20191015
  5. METHYLCOBALAMIN [Concomitant]
     Active Substance: METHYLCOBALAMIN
  6. DEXTROSE\SODIUM CHLORIDE\SODIUM LACTATE [Concomitant]
     Active Substance: DEXTROSE\SODIUM CHLORIDE\SODIUM LACTATE
     Indication: Decreased appetite
     Dosage: AS REQUIRED
     Route: 051
     Dates: start: 20220725
  7. DEXTROSE\SODIUM CHLORIDE\SODIUM LACTATE [Concomitant]
     Active Substance: DEXTROSE\SODIUM CHLORIDE\SODIUM LACTATE
  8. POLAPREZINC [Concomitant]
     Active Substance: POLAPREZINC
     Indication: Zinc deficiency
     Dosage: 1 IN 0.5 D
     Route: 048
     Dates: start: 20190724
  9. NOVOLIN R [Concomitant]
     Active Substance: INSULIN HUMAN
     Indication: Hyperglycaemia
     Dosage: AS REQUIRED
     Route: 058
     Dates: start: 20190813
  10. SODIUM PICOSULFATE [Concomitant]
     Active Substance: SODIUM PICOSULFATE
     Indication: Constipation
     Dosage: AS REQUIRED
     Route: 048
     Dates: start: 20190814
  11. COMIRNATY [Concomitant]
     Active Substance: TOZINAMERAN
     Indication: COVID-19
     Dosage: 0.3 ML
     Route: 030
     Dates: start: 20210726
  12. COMIRNATY [Concomitant]
     Active Substance: TOZINAMERAN
     Dosage: 0.3 ML
     Route: 030
     Dates: start: 20210816
  13. COMIRNATY [Concomitant]
     Active Substance: TOZINAMERAN
     Dosage: 0.3 ML
     Route: 030
     Dates: start: 20220326
  14. BIFIDOBACTERIUM BIFIDUM [Concomitant]
     Active Substance: BIFIDOBACTERIUM BIFIDUM
     Indication: Prophylaxis
     Dosage: AS NEEDED
     Route: 048
  15. BIFIDOBACTERIUM BIFIDUM [Concomitant]
     Active Substance: BIFIDOBACTERIUM BIFIDUM
     Dosage: 1 GM, AS NEEDED
     Route: 048
  16. SULFAMETHOXAZOLE\TRIMETHOPRIM [Concomitant]
     Active Substance: SULFAMETHOXAZOLE\TRIMETHOPRIM
     Indication: Prophylaxis
     Dosage: 1 IN 0.25 WK
     Route: 048
     Dates: start: 20190813, end: 20190822
  17. SULFAMETHOXAZOLE\TRIMETHOPRIM [Concomitant]
     Active Substance: SULFAMETHOXAZOLE\TRIMETHOPRIM
     Dosage: 1 IN 1 WK
     Route: 048
     Dates: start: 20190925, end: 20191004
  18. SULFAMETHOXAZOLE\TRIMETHOPRIM [Concomitant]
     Active Substance: SULFAMETHOXAZOLE\TRIMETHOPRIM
     Dosage: 1 IN 1 WK
     Route: 048
     Dates: start: 20191010, end: 20191010
  19. SULFAMETHOXAZOLE\TRIMETHOPRIM [Concomitant]
     Active Substance: SULFAMETHOXAZOLE\TRIMETHOPRIM
     Dosage: 1 IN 0.5 WK
     Route: 048
     Dates: start: 20191017
  20. ASPIRIN [Concomitant]
     Active Substance: ASPIRIN
     Indication: Thrombosis prophylaxis
     Route: 048
     Dates: start: 20190813
  21. ACYCLOVIR [Concomitant]
     Active Substance: ACYCLOVIR
     Indication: Prophylaxis
     Route: 048
     Dates: start: 20190813
  22. NEXIUM I.V. [Concomitant]
     Active Substance: ESOMEPRAZOLE SODIUM
     Indication: Gastritis prophylaxis
     Route: 048
     Dates: start: 20190813
  23. LUNESTA [Concomitant]
     Active Substance: ESZOPICLONE
     Indication: Insomnia
     Dosage: AS NEEDED
     Route: 048
     Dates: start: 20190814
  24. BIFIDOBACTERIUM SPP. [Concomitant]
     Active Substance: BIFIDOBACTERIUM SPP.
     Indication: Prophylaxis
     Dosage: AS NEEDED
     Route: 048
     Dates: start: 20220222
  25. LEVOTHYROXINE [Concomitant]
     Active Substance: LEVOTHYROXINE
     Indication: Hypothyroidism
     Dosage: 50 MCG,1 IN 1 D
     Route: 048
     Dates: start: 20210907, end: 20211108
  26. LEVOTHYROXINE [Concomitant]
     Active Substance: LEVOTHYROXINE
     Dosage: 100 MCG,1 IN 1 D)
     Route: 048
     Dates: start: 20211109, end: 20220124
  27. LEVOTHYROXINE [Concomitant]
     Active Substance: LEVOTHYROXINE
     Dosage: 125 MCG,1 IN 1 D
     Route: 048
     Dates: start: 20220125, end: 20220711
  28. LEVOTHYROXINE [Concomitant]
     Active Substance: LEVOTHYROXINE
     Dosage: 112.5 MCG,1 IN 1 D
     Route: 048
     Dates: start: 20220712
  29. URSODIOL [Concomitant]
     Active Substance: URSODIOL
     Indication: Hepatic function abnormal
     Dosage: 100 MG,1 IN 0.33 D
     Route: 048
     Dates: start: 20190611, end: 20190909
  30. URSODIOL [Concomitant]
     Active Substance: URSODIOL
     Dosage: 100 MG,1 IN 0.33 D
     Route: 048
     Dates: start: 20190910, end: 20200322
  31. URSODIOL [Concomitant]
     Active Substance: URSODIOL
     Dosage: 200 MG,1 IN 0.33 D
     Route: 048
     Dates: start: 20220711
  32. MAGNESIUM OXIDE [Concomitant]
     Active Substance: MAGNESIUM OXIDE
     Indication: Constipation
     Dosage: AS NEEDED
     Route: 048
     Dates: start: 20190814
  33. LEVOTHYROXINE SODIUM [Concomitant]
     Active Substance: LEVOTHYROXINE SODIUM
     Indication: Thyroid disorder
     Route: 048
     Dates: start: 20220612
  34. DEXTROSE\SODIUM CHLORIDE [Concomitant]
     Active Substance: DEXTROSE\SODIUM CHLORIDE
     Indication: Decreased appetite
     Route: 042
     Dates: start: 20220612
  35. THYROIDINE [Concomitant]
     Indication: Hypothyroidism
     Dosage: 50 MCG (50 MCG,1 IN 1 D)
     Route: 048
     Dates: start: 20210907, end: 20211108
  36. THYROIDINE [Concomitant]
     Dosage: 100 MCG (100 MCG,1 IN 1 D)
     Route: 048
     Dates: start: 20211109, end: 20220124
  37. THYROIDINE [Concomitant]
     Dosage: 125 MCG (125 MCG,1 IN 1 D)
     Route: 048
     Dates: start: 20220125, end: 20220711
  38. THYROIDINE [Concomitant]
     Dosage: 112.5 MCG (112.5 MCG,1 IN 1 D)
     Route: 048
     Dates: start: 20220712
  39. URSODIOL [Concomitant]
     Active Substance: URSODIOL
     Indication: Alanine aminotransferase increased
     Dosage: 303.0303 MG (100 MG,1 IN 0.33 D)
     Route: 048
     Dates: start: 20190611, end: 20190909
  40. URSODIOL [Concomitant]
     Active Substance: URSODIOL
     Indication: Prophylaxis
     Dosage: 03.0303 MG (100 MG,1 IN 0.33 D)
     Route: 048
     Dates: start: 20190910, end: 20200322
  41. URSODIOL [Concomitant]
     Active Substance: URSODIOL
     Dosage: 606.0606 MG (200 MG,1 IN 0.33 D)
     Route: 048
     Dates: start: 20220711

REACTIONS (1)
  - Lung neoplasm malignant [Fatal]

NARRATIVE: CASE EVENT DATE: 20220725
